FAERS Safety Report 4277186-5 (Version None)
Quarter: 2004Q1

REPORT INFORMATION
  Report Type: 
  Country: None (occurrence: None)
  Receive Date: 20040121
  Receipt Date: 20040121
  Transmission Date: 20041129
  Serious: No
  Sender: FDA-Public Use
  Company Number: None

PATIENT
  Age: 19 Year
  Sex: Female

DRUGS (2)
  1. OPTIRAY 320 [Suspect]
     Indication: HAEMATURIA
     Dosage: 100ML X1 IV
     Route: 042
     Dates: start: 20030922
  2. OPTIRAY 320 [Suspect]
     Indication: UROGRAPHY
     Dosage: 100ML X1 IV
     Route: 042
     Dates: start: 20030922

REACTIONS (4)
  - EYE DISORDER [None]
  - FATIGUE [None]
  - SWELLING FACE [None]
  - THROAT TIGHTNESS [None]
